FAERS Safety Report 8822721 (Version 2)
Quarter: 2015Q2

REPORT INFORMATION
  Report Type: Report from Study
  Country: US (occurrence: US)
  Receive Date: 20121003
  Receipt Date: 20150414
  Transmission Date: 20150821
  Serious: Yes (Death)
  Sender: FDA-Public Use
  Company Number: US-ROCHE-1123267

PATIENT
  Sex: Male
  Weight: 77.18 kg

DRUGS (8)
  1. PREDNISONE. [Concomitant]
     Active Substance: PREDNISONE
     Route: 065
  2. SOLU-MEDROL [Concomitant]
     Active Substance: METHYLPREDNISOLONE SODIUM SUCCINATE
     Route: 042
  3. TYLENOL [Concomitant]
     Active Substance: ACETAMINOPHEN
     Route: 048
  4. RITUXAN [Suspect]
     Active Substance: RITUXIMAB
     Route: 042
     Dates: start: 20101117
  5. RITUXAN [Suspect]
     Active Substance: RITUXIMAB
     Indication: TEMPORAL ARTERITIS
     Route: 042
     Dates: start: 20101103
  6. TRAMADOL [Concomitant]
     Active Substance: TRAMADOL
  7. BENADRYL [Concomitant]
     Active Substance: DIPHENHYDRAMINE HYDROCHLORIDE
     Route: 048
  8. CELEBREX [Concomitant]
     Active Substance: CELECOXIB

REACTIONS (1)
  - Death [Fatal]
